FAERS Safety Report 18444577 (Version 2)
Quarter: 2020Q4

REPORT INFORMATION
  Report Type: Spontaneous
  Country: FR (occurrence: FR)
  Receive Date: 20201030
  Receipt Date: 20201204
  Transmission Date: 20210114
  Serious: Yes (Hospitalization, Other)
  Sender: FDA-Public Use
  Company Number: FR-ASTELLAS-2020US036565

PATIENT
  Age: 37 Year
  Sex: Female

DRUGS (18)
  1. PROGRAF [Suspect]
     Active Substance: TACROLIMUS
     Route: 065
  2. CELLCEPT [Concomitant]
     Active Substance: MYCOPHENOLATE MOFETIL\MYCOPHENOLATE MOFETIL HYDROCHLORIDE
     Route: 065
  3. CELLCEPT [Concomitant]
     Active Substance: MYCOPHENOLATE MOFETIL\MYCOPHENOLATE MOFETIL HYDROCHLORIDE
     Route: 065
  4. MYFORTIC [Concomitant]
     Active Substance: MYCOPHENOLATE SODIUM
     Indication: PRODUCT USED FOR UNKNOWN INDICATION
     Dosage: UNK UNK, UNKNOWN FREQ.
     Route: 065
  5. PROGRAF [Suspect]
     Active Substance: TACROLIMUS
     Indication: RENAL TRANSPLANT
     Dosage: UNK UNK, UNKNOWN FREQ.
     Route: 065
     Dates: start: 2014
  6. PROGRAF [Suspect]
     Active Substance: TACROLIMUS
     Route: 065
  7. PROGRAF [Suspect]
     Active Substance: TACROLIMUS
     Route: 065
  8. CORTANCYL [Concomitant]
     Active Substance: PREDNISONE
     Route: 065
  9. PROGRAF [Suspect]
     Active Substance: TACROLIMUS
     Route: 065
  10. ADVAGRAF [Suspect]
     Active Substance: TACROLIMUS
     Indication: RENAL TRANSPLANT
     Route: 065
     Dates: start: 20140227
  11. PROGRAF [Suspect]
     Active Substance: TACROLIMUS
     Route: 065
  12. IMUREL [AZATHIOPRINE] [Concomitant]
     Active Substance: AZATHIOPRINE
     Indication: RENAL TRANSPLANT
     Route: 065
  13. CORTANCYL [Concomitant]
     Active Substance: PREDNISONE
     Route: 065
  14. CELLCEPT [Concomitant]
     Active Substance: MYCOPHENOLATE MOFETIL\MYCOPHENOLATE MOFETIL HYDROCHLORIDE
     Indication: RENAL TRANSPLANT
     Dosage: UNK UNK, UNKNOWN FREQ.
     Route: 065
  15. PROGRAF [Suspect]
     Active Substance: TACROLIMUS
     Route: 065
  16. PROGRAF [Suspect]
     Active Substance: TACROLIMUS
     Dosage: UNK UNK, UNKNOWN FREQ.
     Route: 065
     Dates: end: 202001
  17. CORTANCYL [Concomitant]
     Active Substance: PREDNISONE
     Indication: RENAL TRANSPLANT
     Route: 065
  18. CORTANCYL [Concomitant]
     Active Substance: PREDNISONE

REACTIONS (33)
  - Acute kidney injury [Unknown]
  - Leukopenia [Unknown]
  - Haematoma [Recovering/Resolving]
  - Diarrhoea [Unknown]
  - Iron deficiency anaemia [Unknown]
  - Hypoglycaemia [Unknown]
  - Rash [Unknown]
  - Chills [Unknown]
  - Pyrexia [Unknown]
  - Escherichia infection [Recovering/Resolving]
  - Cytomegalovirus infection [Unknown]
  - Arthritis bacterial [Recovering/Resolving]
  - Metabolic acidosis [Unknown]
  - Decreased appetite [Unknown]
  - Menometrorrhagia [Unknown]
  - Chronic kidney disease [Unknown]
  - Post transplant lymphoproliferative disorder [Unknown]
  - Weight decreased [Unknown]
  - Depression [Unknown]
  - Splenomegaly [Unknown]
  - Psoas abscess [Recovering/Resolving]
  - Malabsorption [Unknown]
  - Weight increased [Unknown]
  - Pain [Unknown]
  - Endometrial hyperplasia [Unknown]
  - Transplant rejection [Unknown]
  - Tumour lysis syndrome [Recovering/Resolving]
  - Lymphoma [Unknown]
  - General physical health deterioration [Unknown]
  - Immunosuppressant drug level decreased [Unknown]
  - Asthenia [Unknown]
  - Anxiety [Unknown]
  - Epstein-Barr virus antigen positive [Unknown]

NARRATIVE: CASE EVENT DATE: 20140210
